FAERS Safety Report 24956872 (Version 1)
Quarter: 2025Q1

REPORT INFORMATION
  Report Type: Spontaneous
  Country: US (occurrence: None)
  Receive Date: 20250207
  Receipt Date: 20250207
  Transmission Date: 20250408
  Serious: Yes (Other)
  Sender: FDA-CTU
  Company Number: None

PATIENT
  Age: 64 Year
  Sex: Female
  Weight: 103 kg

DRUGS (4)
  1. DEVICE [Suspect]
     Active Substance: DEVICE
  2. SERTRALINE [Concomitant]
     Active Substance: SERTRALINE HYDROCHLORIDE
  3. HUMULIN R [Concomitant]
     Active Substance: INSULIN HUMAN
  4. VITAMIN D [Concomitant]
     Active Substance: VITAMIN D NOS

REACTIONS (6)
  - Blood glucose decreased [None]
  - Fall [None]
  - Head injury [None]
  - Device issue [None]
  - Anxiety [None]
  - Nerve injury [None]

NARRATIVE: CASE EVENT DATE: 20220318
